APPROVED DRUG PRODUCT: METHOTREXATE SODIUM
Active Ingredient: METHOTREXATE SODIUM
Strength: EQ 2.5MG BASE/ML
Dosage Form/Route: INJECTABLE;INJECTION
Application: A089323 | Product #001
Applicant: ABRAXIS PHARMACEUTICAL PRODUCTS
Approved: Jun 13, 1986 | RLD: No | RS: No | Type: DISCN